FAERS Safety Report 24121086 (Version 1)
Quarter: 2024Q3

REPORT INFORMATION
  Report Type: Spontaneous
  Country: FR (occurrence: FR)
  Receive Date: 20240722
  Receipt Date: 20240722
  Transmission Date: 20241016
  Serious: Yes (Death, Hospitalization)
  Sender: PFIZER
  Company Number: None

PATIENT
  Age: 50 Year
  Sex: Female
  Weight: 72.5 kg

DRUGS (2)
  1. ADCETRIS [Suspect]
     Active Substance: BRENTUXIMAB VEDOTIN
     Indication: Anaplastic large cell lymphoma T- and null-cell types
     Dosage: 1 DF, EVERY 3 WEEKS
     Route: 042
     Dates: start: 20181009, end: 20190109
  2. BENDAMUSTINE HYDROCHLORIDE [Suspect]
     Active Substance: BENDAMUSTINE HYDROCHLORIDE
     Indication: Anaplastic large cell lymphoma T- and null-cell types
     Dosage: 1 DF, EVERY 3 WEEKS
     Route: 042
     Dates: start: 20181009, end: 20190109

REACTIONS (5)
  - Pancytopenia [Fatal]
  - Bone marrow failure [Fatal]
  - Lung disorder [Fatal]
  - Cytomegalovirus infection reactivation [Fatal]
  - Cytomegalovirus colitis [Fatal]

NARRATIVE: CASE EVENT DATE: 20190114
